FAERS Safety Report 25858926 (Version 1)
Quarter: 2025Q3

REPORT INFORMATION
  Report Type: Spontaneous
  Country: KR (occurrence: KR)
  Receive Date: 20250929
  Receipt Date: 20250929
  Transmission Date: 20251021
  Serious: Yes (Hospitalization, Other)
  Sender: MYLAN
  Company Number: KR-MYLANLABS-2025M1081663

PATIENT
  Age: 55 Year
  Sex: Male

DRUGS (48)
  1. LYRICA [Suspect]
     Active Substance: PREGABALIN
     Indication: Diabetic neuropathy
     Dosage: 150 MILLIGRAM, BID
     Dates: start: 20210303
  2. LYRICA [Suspect]
     Active Substance: PREGABALIN
     Dosage: 150 MILLIGRAM, BID
     Route: 048
     Dates: start: 20210303
  3. LYRICA [Suspect]
     Active Substance: PREGABALIN
     Dosage: 150 MILLIGRAM, BID
     Route: 048
     Dates: start: 20210303
  4. LYRICA [Suspect]
     Active Substance: PREGABALIN
     Dosage: 150 MILLIGRAM, BID
     Dates: start: 20210303
  5. PREGABALIN [Suspect]
     Active Substance: PREGABALIN
     Indication: Product used for unknown indication
     Dosage: 300 MILLIGRAM, QD
     Dates: start: 20210121
  6. PREGABALIN [Suspect]
     Active Substance: PREGABALIN
     Dosage: 300 MILLIGRAM, QD
     Route: 048
     Dates: start: 20210121
  7. PREGABALIN [Suspect]
     Active Substance: PREGABALIN
     Dosage: 300 MILLIGRAM, QD
     Route: 048
     Dates: start: 20210121
  8. PREGABALIN [Suspect]
     Active Substance: PREGABALIN
     Dosage: 300 MILLIGRAM, QD
     Dates: start: 20210121
  9. GLIMEPIRIDE\METFORMIN [Concomitant]
     Active Substance: GLIMEPIRIDE\METFORMIN
     Dosage: 1 DOSAGE FORM, BID
     Route: 048
     Dates: start: 20201231, end: 20210119
  10. GLIMEPIRIDE\METFORMIN [Concomitant]
     Active Substance: GLIMEPIRIDE\METFORMIN
     Dosage: 1 DOSAGE FORM, BID
     Dates: start: 20201231, end: 20210119
  11. GLIMEPIRIDE\METFORMIN [Concomitant]
     Active Substance: GLIMEPIRIDE\METFORMIN
     Dosage: 1 DOSAGE FORM, BID
     Dates: start: 20201231, end: 20210119
  12. GLIMEPIRIDE\METFORMIN [Concomitant]
     Active Substance: GLIMEPIRIDE\METFORMIN
     Dosage: 1 DOSAGE FORM, BID
     Route: 048
     Dates: start: 20201231, end: 20210119
  13. GLIMEPIRIDE\METFORMIN [Concomitant]
     Active Substance: GLIMEPIRIDE\METFORMIN
     Dosage: 1 DOSAGE FORM, BID
     Route: 048
     Dates: start: 20210120
  14. GLIMEPIRIDE\METFORMIN [Concomitant]
     Active Substance: GLIMEPIRIDE\METFORMIN
     Dosage: 1 DOSAGE FORM, BID
     Dates: start: 20210120
  15. GLIMEPIRIDE\METFORMIN [Concomitant]
     Active Substance: GLIMEPIRIDE\METFORMIN
     Dosage: 1 DOSAGE FORM, BID
     Dates: start: 20210120
  16. GLIMEPIRIDE\METFORMIN [Concomitant]
     Active Substance: GLIMEPIRIDE\METFORMIN
     Dosage: 1 DOSAGE FORM, BID
     Route: 048
     Dates: start: 20210120
  17. METFORMIN HYDROCHLORIDE [Concomitant]
     Active Substance: METFORMIN HYDROCHLORIDE
     Dosage: 500 MILLIGRAM, BID
     Dates: start: 20210120
  18. METFORMIN HYDROCHLORIDE [Concomitant]
     Active Substance: METFORMIN HYDROCHLORIDE
     Dosage: 500 MILLIGRAM, BID
     Route: 048
     Dates: start: 20210120
  19. METFORMIN HYDROCHLORIDE [Concomitant]
     Active Substance: METFORMIN HYDROCHLORIDE
     Dosage: 500 MILLIGRAM, BID
     Route: 048
     Dates: start: 20210120
  20. METFORMIN HYDROCHLORIDE [Concomitant]
     Active Substance: METFORMIN HYDROCHLORIDE
     Dosage: 500 MILLIGRAM, BID
     Dates: start: 20210120
  21. PREGABALIN [Concomitant]
     Active Substance: PREGABALIN
     Dosage: 75 MILLIGRAM, BID
     Dates: start: 20201231, end: 20210119
  22. PREGABALIN [Concomitant]
     Active Substance: PREGABALIN
     Dosage: 75 MILLIGRAM, BID
     Route: 048
     Dates: start: 20201231, end: 20210119
  23. PREGABALIN [Concomitant]
     Active Substance: PREGABALIN
     Dosage: 75 MILLIGRAM, BID
     Route: 048
     Dates: start: 20201231, end: 20210119
  24. PREGABALIN [Concomitant]
     Active Substance: PREGABALIN
     Dosage: 75 MILLIGRAM, BID
     Dates: start: 20201231, end: 20210119
  25. Bilberry extract [Concomitant]
     Indication: Diabetic retinopathy
     Dosage: 170 MILLIGRAM, BID
     Dates: start: 20201231, end: 20210119
  26. Bilberry extract [Concomitant]
     Dosage: 170 MILLIGRAM, BID
     Route: 048
     Dates: start: 20201231, end: 20210119
  27. Bilberry extract [Concomitant]
     Dosage: 170 MILLIGRAM, BID
     Route: 048
     Dates: start: 20201231, end: 20210119
  28. Bilberry extract [Concomitant]
     Dosage: 170 MILLIGRAM, BID
     Dates: start: 20201231, end: 20210119
  29. ACECLOFENAC [Concomitant]
     Active Substance: ACECLOFENAC
     Indication: Epicondylitis
     Dosage: 100 MILLIGRAM, BID
     Dates: start: 20201231, end: 20210107
  30. ACECLOFENAC [Concomitant]
     Active Substance: ACECLOFENAC
     Dosage: 100 MILLIGRAM, BID
     Route: 048
     Dates: start: 20201231, end: 20210107
  31. ACECLOFENAC [Concomitant]
     Active Substance: ACECLOFENAC
     Dosage: 100 MILLIGRAM, BID
     Route: 048
     Dates: start: 20201231, end: 20210107
  32. ACECLOFENAC [Concomitant]
     Active Substance: ACECLOFENAC
     Dosage: 100 MILLIGRAM, BID
     Dates: start: 20201231, end: 20210107
  33. BROMELAINS [Concomitant]
     Active Substance: BROMELAINS
     Indication: Epicondylitis
     Dosage: 100 MILLIGRAM, BID
     Dates: start: 20201231, end: 20210107
  34. BROMELAINS [Concomitant]
     Active Substance: BROMELAINS
     Dosage: 100 MILLIGRAM, BID
     Route: 048
     Dates: start: 20201231, end: 20210107
  35. BROMELAINS [Concomitant]
     Active Substance: BROMELAINS
     Dosage: 100 MILLIGRAM, BID
     Route: 048
     Dates: start: 20201231, end: 20210107
  36. BROMELAINS [Concomitant]
     Active Substance: BROMELAINS
     Dosage: 100 MILLIGRAM, BID
     Dates: start: 20201231, end: 20210107
  37. ROXATIDINE ACETATE HYDROCHLORIDE [Concomitant]
     Active Substance: ROXATIDINE ACETATE HYDROCHLORIDE
     Indication: Gastrointestinal disorder prophylaxis
     Dosage: 75 MILLIGRAM, BID
     Dates: start: 20201231, end: 20210107
  38. ROXATIDINE ACETATE HYDROCHLORIDE [Concomitant]
     Active Substance: ROXATIDINE ACETATE HYDROCHLORIDE
     Dosage: 75 MILLIGRAM, BID
     Route: 048
     Dates: start: 20201231, end: 20210107
  39. ROXATIDINE ACETATE HYDROCHLORIDE [Concomitant]
     Active Substance: ROXATIDINE ACETATE HYDROCHLORIDE
     Dosage: 75 MILLIGRAM, BID
     Route: 048
     Dates: start: 20201231, end: 20210107
  40. ROXATIDINE ACETATE HYDROCHLORIDE [Concomitant]
     Active Substance: ROXATIDINE ACETATE HYDROCHLORIDE
     Dosage: 75 MILLIGRAM, BID
     Dates: start: 20201231, end: 20210107
  41. R-thioctic acid trometamine [Concomitant]
     Dosage: 480 MILLIGRAM, QD
     Dates: start: 20201231, end: 20210119
  42. R-thioctic acid trometamine [Concomitant]
     Dosage: 480 MILLIGRAM, QD
     Dates: start: 20201231, end: 20210119
  43. R-thioctic acid trometamine [Concomitant]
     Dosage: 480 MILLIGRAM, QD
     Route: 048
     Dates: start: 20201231, end: 20210119
  44. R-thioctic acid trometamine [Concomitant]
     Dosage: 480 MILLIGRAM, QD
     Route: 048
     Dates: start: 20201231, end: 20210119
  45. R-thioctic acid trometamine [Concomitant]
     Dosage: 480 MILLIGRAM, QD
     Dates: start: 20210120
  46. R-thioctic acid trometamine [Concomitant]
     Dosage: 480 MILLIGRAM, QD
     Dates: start: 20210120
  47. R-thioctic acid trometamine [Concomitant]
     Dosage: 480 MILLIGRAM, QD
     Route: 048
     Dates: start: 20210120
  48. R-thioctic acid trometamine [Concomitant]
     Dosage: 480 MILLIGRAM, QD
     Route: 048
     Dates: start: 20210120

REACTIONS (1)
  - Myelopathy [Recovering/Resolving]

NARRATIVE: CASE EVENT DATE: 20210127
